FAERS Safety Report 25584155 (Version 1)
Quarter: 2025Q3

REPORT INFORMATION
  Report Type: Report from Study
  Country: EU (occurrence: EU)
  Receive Date: 20250721
  Receipt Date: 20250721
  Transmission Date: 20251021
  Serious: Yes (Hospitalization)
  Sender: ABBVIE
  Company Number: EU-ABBVIE-6377124

PATIENT
  Age: 72 Year
  Sex: Male

DRUGS (3)
  1. FOSCARBIDOPA\FOSLEVODOPA [Suspect]
     Active Substance: FOSCARBIDOPA\FOSLEVODOPA
     Indication: Parkinson^s disease
     Route: 058
     Dates: start: 20250617
  2. PANADOL [Concomitant]
     Active Substance: ACETAMINOPHEN
     Indication: Pain
     Dosage: FORM STRENGTH: 1 GRAM
  3. Hypotron [Concomitant]
     Indication: Hypotension
     Dates: start: 2024

REACTIONS (5)
  - Mobility decreased [Recovering/Resolving]
  - Asthenia [Not Recovered/Not Resolved]
  - Posture abnormal [Recovered/Resolved]
  - Gait inability [Recovering/Resolving]
  - Hypotension [Recovering/Resolving]

NARRATIVE: CASE EVENT DATE: 20250709
